FAERS Safety Report 5194084-3 (Version None)
Quarter: 2006Q4

REPORT INFORMATION
  Report Type: 
  Country: None (occurrence: None)
  Receive Date: 20061228
  Receipt Date: 20061214
  Transmission Date: 20070319
  Serious: Yes (Hospitalization)
  Sender: FDA-Public Use
  Company Number: US-ELI_LILLY_AND_COMPANY-US200612002777

PATIENT
  Age: 69 Year
  Sex: Female

DRUGS (2)
  1. FORTEO [Suspect]
     Indication: OSTEOPOROSIS
     Dosage: UNK, UNK
     Dates: start: 20060401, end: 20060701
  2. FORTEO [Suspect]
     Dates: start: 20060801

REACTIONS (5)
  - ALOPECIA [None]
  - FALL [None]
  - FOOT FRACTURE [None]
  - LIMB INJURY [None]
  - TOE DEFORMITY [None]
